FAERS Safety Report 7084114-6 (Version None)
Quarter: 2010Q4

REPORT INFORMATION
  Report Type: 
  Country: None (occurrence: None)
  Receive Date: 20101104
  Receipt Date: 20101101
  Transmission Date: 20110411
  Serious: Yes (Other)
  Sender: FDA-Public Use
  Company Number: US-CEPHALON-2010005703

PATIENT
  Sex: Male
  Weight: 91 kg

DRUGS (9)
  1. TREANDA [Suspect]
     Indication: CHRONIC LYMPHOCYTIC LEUKAEMIA
     Route: 042
     Dates: start: 20100501, end: 20100501
  2. TREANDA [Suspect]
     Route: 042
     Dates: start: 20100701
  3. ALLOPURINOL [Concomitant]
     Route: 048
     Dates: start: 20090101
  4. DECADRON [Concomitant]
     Indication: PREMEDICATION
     Dates: start: 20100501
  5. NEXIUM [Concomitant]
     Dates: start: 20090101
  6. FLOMAX [Concomitant]
  7. CYMBALTA [Concomitant]
     Dates: start: 20090101
  8. BONIVA [Concomitant]
     Dates: start: 20090101
  9. VITAMINS [Concomitant]

REACTIONS (3)
  - PLATELET COUNT DECREASED [None]
  - SQUAMOUS CELL CARCINOMA [None]
  - WHITE BLOOD CELL COUNT DECREASED [None]
